FAERS Safety Report 5419617-0 (Version None)
Quarter: 2007Q3

REPORT INFORMATION
  Report Type: 
  Country: None (occurrence: None)
  Receive Date: 20070816
  Receipt Date: 20070816
  Transmission Date: 20080115
  Serious: Yes (Other)
  Sender: FDA-Public Use
  Company Number: None

PATIENT
  Sex: Male
  Weight: 105.6881 kg

DRUGS (1)
  1. TRAMADOL HCL [Suspect]
     Indication: INTERVERTEBRAL DISC DISORDER
     Dosage: 1-2 TID PO
     Route: 048
     Dates: start: 20070724, end: 20070811

REACTIONS (2)
  - DEPRESSION [None]
  - THINKING ABNORMAL [None]
